FAERS Safety Report 8955331 (Version 1)
Quarter: 2012Q4

REPORT INFORMATION
  Report Type: 
  Country: US (occurrence: US)
  Receive Date: 20121207
  Receipt Date: 20121207
  Transmission Date: 20130627
  Serious: Yes (Hospitalization, Other)
  Sender: FDA-Public Use
  Company Number: US-ABBOTT-12P-163-1017141-00

PATIENT
  Age: 18 None
  Sex: Female
  Weight: 60.3 kg

DRUGS (3)
  1. HUMIRA [Suspect]
     Indication: PRODUCT USED FOR UNKNOWN INDICATION
     Dosage: Has not taken her dose in 3weeks due to genital herpes
     Dates: start: 20090829
  2. REMICADE [Suspect]
     Indication: CROHN^S DISEASE
     Dosage: Lyophilized powder
     Dates: start: 20071010
  3. METHOTREXATE [Suspect]
     Indication: PRODUCT USED FOR UNKNOWN INDICATION
     Dates: end: 20120922

REACTIONS (10)
  - Crohn^s disease [Recovered/Resolved with Sequelae]
  - Crohn^s disease [Unknown]
  - Colectomy [Unknown]
  - Genital herpes [Unknown]
  - Anal fistula [Unknown]
  - Enterocutaneous fistula [Unknown]
  - Post procedural haemorrhage [Unknown]
  - Abdominal pain [Recovering/Resolving]
  - Decreased appetite [Recovering/Resolving]
  - Rectal discharge [Unknown]
